FAERS Safety Report 7325856-4 (Version None)
Quarter: 2011Q1

REPORT INFORMATION
  Report Type: 
  Country: None (occurrence: None)
  Receive Date: 20110302
  Receipt Date: 20110221
  Transmission Date: 20110831
  Serious: Yes (Other)
  Sender: FDA-Public Use
  Company Number: JP-JNJFOC-20110207433

PATIENT

DRUGS (7)
  1. NOVAMIN [Suspect]
     Indication: PRODUCT USED FOR UNKNOWN INDICATION
     Route: 065
  2. ANTIDIABETIC DRUG [Suspect]
     Indication: PRODUCT USED FOR UNKNOWN INDICATION
     Route: 065
  3. LYRICA [Suspect]
     Indication: PRODUCT USED FOR UNKNOWN INDICATION
     Route: 048
  4. DUROTEP MT [Suspect]
     Indication: PAIN
     Route: 062
  5. DUROTEP MT [Suspect]
     Route: 062
  6. RHEUMATREX [Suspect]
     Indication: MUSCULOSKELETAL PAIN
     Route: 065
  7. LOXONIN [Suspect]
     Indication: PRODUCT USED FOR UNKNOWN INDICATION
     Route: 065

REACTIONS (5)
  - NAUSEA [None]
  - SOMNOLENCE [None]
  - OXYGEN SATURATION DECREASED [None]
  - MENTAL IMPAIRMENT [None]
  - CONDITION AGGRAVATED [None]
